FAERS Safety Report 16413762 (Version 1)
Quarter: 2019Q2

REPORT INFORMATION
  Report Type: Report from Study
  Country: CN (occurrence: CN)
  Receive Date: 20190611
  Receipt Date: 20190611
  Transmission Date: 20190711
  Serious: Yes (Hospitalization)
  Sender: FDA-Public Use
  Company Number: CN-SA-2019SA153776

PATIENT
  Age: 64 Year
  Sex: Male
  Weight: 82 kg

DRUGS (3)
  1. CLOPIDOGREL BISULFATE. [Suspect]
     Active Substance: CLOPIDOGREL BISULFATE
     Indication: ANTIPLATELET THERAPY
     Dosage: UNK UNK, UNK
     Route: 065
     Dates: start: 20190417
  2. ACETYLSALICYLIC ACID [Suspect]
     Active Substance: ASPIRIN
     Indication: ANTIPLATELET THERAPY
     Dosage: UNK UNK, UNK
     Route: 065
     Dates: start: 20190417
  3. ATORVASTATIN [Suspect]
     Active Substance: ATORVASTATIN
     Indication: ANTIPLATELET THERAPY
     Dosage: UNK UNK, UNK
     Route: 065
     Dates: start: 20190417

REACTIONS (5)
  - Vomiting [Unknown]
  - Nausea [Unknown]
  - Cerebral infarction [Recovering/Resolving]
  - Diplopia [Unknown]
  - Vertigo [Unknown]

NARRATIVE: CASE EVENT DATE: 20190515
